FAERS Safety Report 11403508 (Version 2)
Quarter: 2016Q2

REPORT INFORMATION
  Report Type: Report from Study
  Country: DE (occurrence: DE)
  Receive Date: 20150821
  Receipt Date: 20160617
  Transmission Date: 20160815
  Serious: Yes (Hospitalization)
  Sender: FDA-Public Use
  Company Number: DE-JNJFOC-20141013211

PATIENT
  Age: 65 Year
  Sex: Female

DRUGS (11)
  1. CELECOXIB. [Concomitant]
     Active Substance: CELECOXIB
     Route: 065
     Dates: start: 20140410, end: 20140513
  2. SIMPONI [Suspect]
     Active Substance: GOLIMUMAB
     Indication: ANKYLOSING SPONDYLITIS
     Route: 058
  3. SIMPONI [Suspect]
     Active Substance: GOLIMUMAB
     Indication: ANKYLOSING SPONDYLITIS
     Route: 058
  4. VITAMIN D [Concomitant]
     Active Substance: CHOLECALCIFEROL
     Indication: OSTEOPOROSIS PROPHYLAXIS
     Route: 065
     Dates: start: 20150427
  5. SIMVASTATIN. [Concomitant]
     Active Substance: SIMVASTATIN
     Indication: HYPERLIPIDAEMIA
     Route: 065
     Dates: start: 200912
  6. VERAPAMIL [Concomitant]
     Active Substance: VERAPAMIL HYDROCHLORIDE
     Indication: ATRIAL FIBRILLATION
     Route: 065
     Dates: start: 201402
  7. NASONEX [Concomitant]
     Active Substance: MOMETASONE FUROATE
     Indication: SEASONAL ALLERGY
     Route: 055
     Dates: start: 201405
  8. SIMPONI [Suspect]
     Active Substance: GOLIMUMAB
     Indication: ANKYLOSING SPONDYLITIS
     Dosage: APPROXIMATE NUMBER OF INJECTIONS PATIENT RECEIVED 14
     Route: 058
     Dates: start: 20140521, end: 20150621
  9. FALITHROM [Concomitant]
     Active Substance: PHENPROCOUMON
     Indication: ATRIAL FIBRILLATION
     Route: 065
     Dates: start: 200902
  10. EUTHYROX [Concomitant]
     Active Substance: LEVOTHYROXINE SODIUM
     Indication: AUTOIMMUNE THYROIDITIS
     Route: 065
     Dates: start: 200912
  11. SALBUTAMOL [Concomitant]
     Active Substance: ALBUTEROL
     Indication: ASTHMA
     Route: 065
     Dates: start: 201402

REACTIONS (4)
  - Intervertebral disc protrusion [Recovering/Resolving]
  - Breast cyst [Not Recovered/Not Resolved]
  - Spinal column stenosis [Recovering/Resolving]
  - Sciatica [Recovered/Resolved]

NARRATIVE: CASE EVENT DATE: 20141001
